FAERS Safety Report 19632285 (Version 1)
Quarter: 2021Q3

REPORT INFORMATION
  Report Type: Report from Study
  Country: CA (occurrence: CA)
  Receive Date: 20210729
  Receipt Date: 20210729
  Transmission Date: 20211014
  Serious: Yes (Other)
  Sender: FDA-Public Use
  Company Number: CA-SAMSUNG BIOEPIS-SB-2021-13661

PATIENT
  Age: 50 Year
  Sex: Female

DRUGS (1)
  1. BRENZYS [Suspect]
     Active Substance: ETANERCEPT
     Indication: ANKYLOSING SPONDYLITIS
     Route: 065
     Dates: start: 20210521

REACTIONS (10)
  - Headache [Not Recovered/Not Resolved]
  - Ear infection [Not Recovered/Not Resolved]
  - Tooth infection [Not Recovered/Not Resolved]
  - Nausea [Unknown]
  - Anxiety [Unknown]
  - Crying [Unknown]
  - Loss of personal independence in daily activities [Unknown]
  - Suicidal ideation [Unknown]
  - Asthenia [Unknown]
  - Chills [Unknown]
